FAERS Safety Report 9159208 (Version 1)
Quarter: 2013Q1

REPORT INFORMATION
  Report Type: Spontaneous
  Country: US (occurrence: None)
  Receive Date: 20130213
  Receipt Date: 20130213
  Transmission Date: 20140127
  Serious: Yes (Life-Threatening)
  Sender: FDA-Public Use
  Company Number: 201302000037

PATIENT
  Age: 6 Day
  Sex: 0

DRUGS (1)
  1. INOMAX [Suspect]
     Dosage: 20 PPM, CONTINUOUS
     Route: 055
     Dates: start: 20130129, end: 20130129

REACTIONS (5)
  - Cardio-respiratory arrest [None]
  - Device issue [None]
  - Off label use [None]
  - Device deployment issue [None]
  - Device information output issue [None]
